FAERS Safety Report 7230483-3 (Version None)
Quarter: 2011Q1

REPORT INFORMATION
  Report Type: 
  Country: None (occurrence: None)
  Receive Date: 20110118
  Receipt Date: 20110111
  Transmission Date: 20110831
  Serious: Yes (Hospitalization)
  Sender: FDA-Public Use
  Company Number: FR-JNJFOC-20110102580

PATIENT
  Age: 57 Year
  Sex: Female

DRUGS (11)
  1. AUGMENTIN '125' [Concomitant]
     Route: 065
  2. IMOVANE [Concomitant]
     Route: 065
  3. TAVANIC [Suspect]
     Indication: PRODUCT USED FOR UNKNOWN INDICATION
     Route: 065
  4. ARIXTRA [Concomitant]
     Route: 065
  5. ISOPTIN [Concomitant]
     Route: 065
  6. XYZAL [Concomitant]
     Route: 065
  7. PULMICORT [Concomitant]
     Route: 065
  8. LASIX [Concomitant]
     Route: 065
  9. SINGULAIR [Concomitant]
     Route: 065
  10. CITALOPRAM HYDROBROMIDE [Concomitant]
     Route: 065
  11. VENTOLIN [Concomitant]
     Route: 065

REACTIONS (6)
  - ELECTROCARDIOGRAM QT PROLONGED [None]
  - VENTRICULAR TACHYCARDIA [None]
  - CLONUS [None]
  - TORSADE DE POINTES [None]
  - OCULOGYRIC CRISIS [None]
  - LOSS OF CONSCIOUSNESS [None]
